FAERS Safety Report 7280242-0 (Version None)
Quarter: 2011Q1

REPORT INFORMATION
  Report Type: 
  Country: None (occurrence: None)
  Receive Date: 20110208
  Receipt Date: 20110201
  Transmission Date: 20110831
  Serious: Yes (Death, Life-Threatening, Hospitalization)
  Sender: FDA-Public Use
  Company Number: FR-SANOFI-AVENTIS-2011SA002549

PATIENT
  Age: 79 Year
  Sex: Male

DRUGS (4)
  1. SOLU-MEDROL [Concomitant]
     Dates: start: 20101004, end: 20101217
  2. TAXOTERE [Interacting]
     Indication: PROSTATE CANCER
     Dates: start: 20101004, end: 20101217
  3. MULTAQ [Suspect]
     Indication: ATRIAL FIBRILLATION
     Route: 048
     Dates: start: 20101203, end: 20101223
  4. KYTRIL [Concomitant]
     Dates: start: 20101004, end: 20101217

REACTIONS (6)
  - MUCOSAL INFLAMMATION [None]
  - BONE MARROW FAILURE [None]
  - MIXED LIVER INJURY [None]
  - PYREXIA [None]
  - DRUG INTERACTION [None]
  - CONJUNCTIVITIS [None]
